FAERS Safety Report 5684009-6 (Version None)
Quarter: 2008Q1

REPORT INFORMATION
  Report Type: 
  Country: None (occurrence: None)
  Receive Date: 20080328
  Receipt Date: 20080325
  Transmission Date: 20080703
  Serious: Yes (Life-Threatening, Hospitalization, Other)
  Sender: FDA-Public Use
  Company Number: FR-JNJFOC-20071203480

PATIENT
  Age: 38 Year
  Sex: Male

DRUGS (3)
  1. TAVANIC [Suspect]
     Route: 048
  2. TAVANIC [Suspect]
     Indication: ACUTE SINUSITIS
     Route: 048
  3. SOLUPRED [Concomitant]
     Indication: ACUTE SINUSITIS
     Route: 048

REACTIONS (1)
  - ACUTE PULMONARY OEDEMA [None]
